FAERS Safety Report 10466472 (Version 3)
Quarter: 2014Q4

REPORT INFORMATION
  Report Type: Report from Study
  Country: AU (occurrence: AU)
  Receive Date: 20140922
  Receipt Date: 20141007
  Transmission Date: 20150528
  Serious: Yes (Hospitalization, Other)
  Sender: FDA-Public Use
  Company Number: PHHY2014AU110017

PATIENT
  Sex: Male

DRUGS (1)
  1. CLOZARIL [Suspect]
     Active Substance: CLOZAPINE
     Indication: SCHIZOPHRENIA
     Dosage: 225 (UNIT UNSPECIFIED)
     Route: 048
     Dates: start: 19950407, end: 20140830

REACTIONS (5)
  - Renal failure [Unknown]
  - Renal impairment [Unknown]
  - Abdominal compartment syndrome [Unknown]
  - Faecaloma [Unknown]
  - Intestinal ischaemia [Recovering/Resolving]
